FAERS Safety Report 8176602-6 (Version None)
Quarter: 2012Q1

REPORT INFORMATION
  Report Type: 
  Country: None (occurrence: None)
  Receive Date: 20120301
  Receipt Date: 20120221
  Transmission Date: 20120608
  Serious: Yes (Hospitalization)
  Sender: FDA-Public Use
  Company Number: US-BAYER-2012-018526

PATIENT
  Age: 27 Year
  Sex: Female
  Weight: 104.31 kg

DRUGS (1)
  1. YAZ [Suspect]
     Dosage: UNK

REACTIONS (1)
  - THROMBOCYTOPENIA [None]
